FAERS Safety Report 5822306-1 (Version None)
Quarter: 2008Q3

REPORT INFORMATION
  Report Type: 
  Country: None (occurrence: None)
  Receive Date: 20080725
  Receipt Date: 20080402
  Transmission Date: 20090109
  Serious: No
  Sender: FDA-Public Use
  Company Number: US-AMGEN-KDL272756

PATIENT
  Sex: Female
  Weight: 54.9 kg

DRUGS (4)
  1. PROCRIT [Suspect]
     Indication: ANAEMIA OF MALIGNANT DISEASE
     Dates: start: 20080312
  2. PHENAZOPYRIDINE HCL TAB [Concomitant]
     Dates: start: 20080301
  3. PROTONIX [Concomitant]
  4. FLUOROURACIL [Concomitant]

REACTIONS (2)
  - HAEMOGLOBIN DECREASED [None]
  - STOMACH DISCOMFORT [None]
